FAERS Safety Report 7689727-6 (Version None)
Quarter: 2011Q3

REPORT INFORMATION
  Report Type: 
  Country: None (occurrence: None)
  Receive Date: 20110817
  Receipt Date: 20110817
  Transmission Date: 20111222
  Serious: Yes (Hospitalization, Other)
  Sender: FDA-Public Use
  Company Number: SI-ABBOTT-11P-261-0728240-00

PATIENT
  Age: 31 Year
  Sex: Female

DRUGS (2)
  1. HUMIRA [Suspect]
     Indication: CROHN'S DISEASE
     Route: 058
     Dates: start: 20100401, end: 20110417
  2. VENOFER [Concomitant]
     Indication: ANAEMIA
     Route: 042
     Dates: start: 20110512

REACTIONS (5)
  - PLACENTA PRAEVIA [None]
  - VAGINAL HAEMORRHAGE [None]
  - ANAEMIA [None]
  - VASA PRAEVIA [None]
  - PREMATURE DELIVERY [None]
